FAERS Safety Report 11123702 (Version 2)
Quarter: 2015Q2

REPORT INFORMATION
  Report Type: Spontaneous
  Country: US (occurrence: US)
  Receive Date: 20150519
  Receipt Date: 20150618
  Transmission Date: 20150821
  Serious: No
  Sender: FDA-Public Use
  Company Number: US-ASTRAZENECA-2015SE43665

PATIENT
  Sex: Female

DRUGS (1)
  1. RHINOCORT [Suspect]
     Active Substance: BUDESONIDE
     Indication: DYSPNOEA
     Dosage: 32MCG, 2 SPRAYS DAILY
     Route: 045
     Dates: start: 20150501

REACTIONS (3)
  - Off label use [Unknown]
  - Nervousness [Unknown]
  - Product quality issue [Unknown]
